FAERS Safety Report 9627948 (Version 1)
Quarter: 2013Q4

REPORT INFORMATION
  Report Type: Spontaneous
  Country: US (occurrence: US)
  Receive Date: 20131016
  Receipt Date: 20131016
  Transmission Date: 20140711
  Serious: Yes (Other)
  Sender: FDA-Public Use
  Company Number: US-SHIRE-ALL1-2013-06736

PATIENT
  Age: 46 Year
  Sex: Female
  Weight: 81.63 kg

DRUGS (17)
  1. PENTASA [Suspect]
     Indication: IRRITABLE BOWEL SYNDROME
     Dosage: UNK (REDUCED DOSE), UNKNOWN
     Route: 048
  2. PENTASA [Suspect]
     Indication: CROHN^S DISEASE
     Dosage: 1000 MG, 4X/DAY:QID (TWO 500 MG TABLETS FOUR TIMES DAILY)
     Route: 048
  3. PENTASA [Suspect]
     Indication: ABDOMINAL PAIN UPPER
  4. PENTASA [Suspect]
     Indication: NAUSEA
  5. ROBINUL [Suspect]
     Indication: IRRITABLE BOWEL SYNDROME
     Dosage: 3 MG, 1X/DAY:QD
     Route: 065
     Dates: start: 2013, end: 201309
  6. ROBINUL [Suspect]
     Indication: CROHN^S DISEASE
     Dosage: 2 MG, 1X/DAY:QD (TWO 1 MG TABLETS)
     Route: 065
     Dates: start: 2013, end: 2013
  7. ROBINUL [Suspect]
     Indication: ABDOMINAL PAIN UPPER
  8. ROBINUL [Suspect]
     Indication: NAUSEA
  9. PRILOSEC /00661201/ [Suspect]
     Indication: IRRITABLE BOWEL SYNDROME
     Dosage: 80 MG, 1X/DAY:QD (TWO 40 MG TABLETS)
     Route: 065
     Dates: start: 2013, end: 201309
  10. PRILOSEC /00661201/ [Suspect]
     Indication: CROHN^S DISEASE
     Dosage: 40 MG, 1X/DAY:QD
     Dates: end: 2013
  11. PRILOSEC /00661201/ [Suspect]
     Indication: ABDOMINAL PAIN UPPER
  12. PRILOSEC /00661201/ [Suspect]
     Indication: NAUSEA
  13. ZOFRAN /00955301/ [Suspect]
     Indication: NAUSEA
     Dosage: UNK (REDUCED DOSE), UNKNOWN
     Route: 065
  14. ZOFRAN /00955301/ [Suspect]
     Dosage: 4 MG, 4X/DAY:QID
     Route: 065
  15. XANAX [Suspect]
     Indication: ANXIETY
     Dosage: UNK, UNKNOWN
     Route: 065
  16. XANAX [Suspect]
     Indication: PANIC ATTACK
     Dosage: UNK (HALF OF 0.5 MG), UNKNOWN
     Route: 065
  17. XANAX [Suspect]
     Dosage: UNK, 3X/DAY:TID
     Route: 065

REACTIONS (14)
  - Withdrawal syndrome [Not Recovered/Not Resolved]
  - Chills [Not Recovered/Not Resolved]
  - Tremor [Not Recovered/Not Resolved]
  - Crying [Not Recovered/Not Resolved]
  - Pallor [Not Recovered/Not Resolved]
  - Influenza like illness [Not Recovered/Not Resolved]
  - Aphagia [Not Recovered/Not Resolved]
  - Hyperhidrosis [Not Recovered/Not Resolved]
  - Vomiting [Not Recovered/Not Resolved]
  - Headache [Not Recovered/Not Resolved]
  - Panic attack [Not Recovered/Not Resolved]
  - Anxiety [Not Recovered/Not Resolved]
  - Condition aggravated [Not Recovered/Not Resolved]
  - Off label use [Not Recovered/Not Resolved]
